FAERS Safety Report 17057870 (Version 1)
Quarter: 2019Q4

REPORT INFORMATION
  Report Type: Spontaneous
  Country: CA (occurrence: CA)
  Receive Date: 20191121
  Receipt Date: 20191121
  Transmission Date: 20200122
  Serious: Yes (Other)
  Sender: FDA-Public Use
  Company Number: CA-PFIZER INC-2019499314

PATIENT
  Age: 62 Year
  Sex: Female
  Weight: 65 kg

DRUGS (8)
  1. CARBOPLATIN. [Concomitant]
     Active Substance: CARBOPLATIN
     Dosage: UNK
  2. ATORVASTATIN [Concomitant]
     Active Substance: ATORVASTATIN
     Dosage: UNK
  3. SENOKOT [Concomitant]
     Active Substance: SENNOSIDES
     Dosage: UNK
  4. ASA [Concomitant]
     Active Substance: ASPIRIN
     Dosage: UNK
  5. CALCIUM + MAGNESIUM CITRAT [Concomitant]
     Dosage: UNK
  6. PACLITAXEL. [Suspect]
     Active Substance: PACLITAXEL
     Indication: METASTATIC UTERINE CANCER
     Dosage: 300 MG, DAILY
     Route: 042
  7. ERGOCALCIFEROL. [Concomitant]
     Active Substance: ERGOCALCIFEROL
     Dosage: UNK
  8. OLMESARTAN [Concomitant]
     Active Substance: OLMESARTAN
     Dosage: UNK

REACTIONS (4)
  - Chest discomfort [Recovered/Resolved]
  - Flushing [Recovered/Resolved]
  - Back pain [Recovered/Resolved]
  - Off label use [Recovered/Resolved]
